FAERS Safety Report 8765487 (Version 3)
Quarter: 2012Q4

REPORT INFORMATION
  Report Type: 
  Country: JP (occurrence: JP)
  Receive Date: 20120903
  Receipt Date: 20121005
  Transmission Date: 20130627
  Serious: Yes (Hospitalization, Other)
  Sender: FDA-Public Use
  Company Number: JP-PFIZER INC-2012209474

PATIENT
  Age: 37 Year
  Sex: Female
  Weight: 49 kg

DRUGS (2)
  1. ZITHROMAC [Suspect]
     Indication: PERIODONTAL DISEASE
     Dosage: UNK
     Route: 048
     Dates: start: 20120822, end: 20120822
  2. LOXONIN [Concomitant]
     Indication: DENTAL CARE
     Dosage: UNK, as needed
     Route: 048
     Dates: start: 20120822, end: 20120822

REACTIONS (2)
  - Large intestinal haemorrhage [Recovered/Resolved]
  - Melaena [Unknown]
